FAERS Safety Report 9026287 (Version 1)
Quarter: 2013Q1

REPORT INFORMATION
  Report Type: Spontaneous
  Country: IN (occurrence: None)
  Receive Date: 20130104
  Receipt Date: 20130104
  Transmission Date: 20140127
  Serious: Yes (Hospitalization, Other)
  Sender: FDA-Public Use
  Company Number: 2012P1068330

PATIENT
  Age: 24 Year
  Sex: Male

DRUGS (10)
  1. ONDANSETRON [Suspect]
     Indication: GASTROENTERITIS
     Route: 048
  2. ONDANSETRON [Suspect]
     Indication: NAUSEA
     Route: 048
  3. OFLOXACIN [Concomitant]
  4. ORNIDAZOLE [Concomitant]
  5. MULTIVITAMINS [Concomitant]
  6. RIFAMPICIN [Concomitant]
  7. ISONIAZID [Concomitant]
  8. ETHAMBUTOL [Concomitant]
  9. PYRAZINAMIDE [Concomitant]
  10. COTRIMOXAZOLE [Concomitant]

REACTIONS (1)
  - Toxic epidermal necrolysis [None]
